FAERS Safety Report 7994429-2 (Version None)
Quarter: 2011Q4

REPORT INFORMATION
  Report Type: 
  Country: None (occurrence: None)
  Receive Date: 20111217
  Receipt Date: 20111217
  Transmission Date: 20120403
  Serious: Yes (Hospitalization)
  Sender: FDA-Public Use
  Company Number: None

PATIENT
  Sex: Male
  Weight: 72.9 kg

DRUGS (2)
  1. CISPLATIN [Suspect]
     Dosage: 150 MG
  2. ETOPOSIDE [Suspect]
     Dosage: 570 MG

REACTIONS (2)
  - NEUTROPHIL COUNT INCREASED [None]
  - PYREXIA [None]
